FAERS Safety Report 10151259 (Version 1)
Quarter: 2014Q2

REPORT INFORMATION
  Report Type: Spontaneous
  Country: US (occurrence: US)
  Receive Date: 20140502
  Receipt Date: 20140502
  Transmission Date: 20141212
  Serious: No
  Sender: FDA-Public Use
  Company Number: US-ASTRAZENECA-2013SE90465

PATIENT
  Sex: Female

DRUGS (8)
  1. PRILOSEC OTC [Suspect]
     Indication: DYSPNOEA
     Route: 048
     Dates: start: 201311, end: 20131201
  2. PRILOSEC OTC [Suspect]
     Indication: DIZZINESS
     Route: 048
     Dates: start: 201311, end: 20131201
  3. PRILOSEC OTC [Suspect]
     Indication: PAIN IN EXTREMITY
     Route: 048
     Dates: start: 201311, end: 20131201
  4. PRILOSEC OTC [Suspect]
     Indication: HYPERHIDROSIS
     Route: 048
     Dates: start: 201311, end: 20131201
  5. PRILOSEC OTC [Suspect]
     Indication: DYSPNOEA
     Route: 048
  6. PRILOSEC OTC [Suspect]
     Indication: DIZZINESS
     Route: 048
  7. PRILOSEC OTC [Suspect]
     Indication: PAIN IN EXTREMITY
     Route: 048
  8. PRILOSEC OTC [Suspect]
     Indication: HYPERHIDROSIS
     Route: 048

REACTIONS (2)
  - Chest discomfort [Not Recovered/Not Resolved]
  - Drug ineffective for unapproved indication [Not Recovered/Not Resolved]
